FAERS Safety Report 8977581 (Version 1)
Quarter: 2012Q4

REPORT INFORMATION
  Report Type: 
  Country: DE (occurrence: DE)
  Receive Date: 20121220
  Receipt Date: 20121220
  Transmission Date: 20130627
  Serious: Yes (Hospitalization)
  Sender: FDA-Public Use
  Company Number: DE-ELI_LILLY_AND_COMPANY-DE201212002489

PATIENT
  Sex: Female

DRUGS (5)
  1. FORSTEO [Suspect]
     Indication: OSTEOPOROSIS
     Dosage: UNK, qd
     Route: 058
     Dates: start: 20120831
  2. MARCUMAR [Concomitant]
  3. RAMIPRIL [Concomitant]
  4. BISOLVON [Concomitant]
  5. VIGANTOLETTEN [Concomitant]

REACTIONS (3)
  - Femur fracture [Unknown]
  - Fall [Unknown]
  - Dizziness [Unknown]
